FAERS Safety Report 7247677-3 (Version None)
Quarter: 2011Q1

REPORT INFORMATION
  Report Type: 
  Country: None (occurrence: None)
  Receive Date: 20110127
  Receipt Date: 20110117
  Transmission Date: 20110831
  Serious: Yes (Life-Threatening, Other)
  Sender: FDA-Public Use
  Company Number: JP-CELGENEUS-087-21880-11011577

PATIENT
  Sex: Female

DRUGS (20)
  1. ETIZOLAM [Concomitant]
     Route: 048
     Dates: start: 20101016
  2. REVLIMID [Suspect]
     Route: 048
     Dates: start: 20101022, end: 20101024
  3. REVLIMID [Suspect]
     Route: 048
     Dates: start: 20101027, end: 20101103
  4. REVLIMID [Suspect]
     Route: 048
     Dates: start: 20101210, end: 20101229
  5. CEPHARANTHIN [Concomitant]
     Indication: MULTIPLE MYELOMA
     Route: 048
     Dates: start: 20101016
  6. CALONAL [Concomitant]
     Indication: MULTIPLE MYELOMA
     Route: 048
     Dates: start: 20101016
  7. FUNGIZONE [Concomitant]
     Indication: MULTIPLE MYELOMA
     Route: 048
     Dates: start: 20101016
  8. FENTANYL [Suspect]
     Route: 061
     Dates: start: 20101201
  9. BETAMETHASONE [Concomitant]
     Indication: MULTIPLE MYELOMA
     Route: 048
     Dates: start: 20101016
  10. METHYCOBAL [Concomitant]
     Indication: MULTIPLE MYELOMA
     Route: 048
     Dates: start: 20101016
  11. PROTECADIN [Concomitant]
     Indication: MULTIPLE MYELOMA
     Route: 048
     Dates: start: 20101016
  12. MUCOSTA [Concomitant]
     Indication: PROPHYLAXIS
     Route: 048
     Dates: start: 20101016
  13. LENADEX [Suspect]
     Indication: MULTIPLE MYELOMA
     Route: 048
     Dates: start: 20101119, end: 20101119
  14. VALTREX [Concomitant]
     Indication: MULTIPLE MYELOMA
     Route: 048
     Dates: start: 20101016
  15. ENSURE LIQUID [Concomitant]
     Indication: MULTIPLE MYELOMA
     Route: 048
     Dates: start: 20101016
  16. REVLIMID [Suspect]
     Indication: MULTIPLE MYELOMA
     Route: 048
     Dates: start: 20101016, end: 20101021
  17. NOVAMIN [Concomitant]
     Route: 048
     Dates: start: 20101016
  18. REVLIMID [Suspect]
     Route: 048
     Dates: start: 20101113, end: 20101202
  19. LENADEX [Suspect]
     Route: 048
     Dates: start: 20101126, end: 20101126
  20. LENADEX [Suspect]
     Route: 048
     Dates: start: 20101201, end: 20101229

REACTIONS (8)
  - HYPERTHERMIA [None]
  - ALTERED STATE OF CONSCIOUSNESS [None]
  - PYREXIA [None]
  - PLATELET COUNT DECREASED [None]
  - LIP HAEMORRHAGE [None]
  - PAIN [None]
  - NEUTROPHIL COUNT DECREASED [None]
  - PSYCHIATRIC SYMPTOM [None]
